FAERS Safety Report 18932961 (Version 1)
Quarter: 2021Q1

REPORT INFORMATION
  Report Type: Spontaneous
  Country: US (occurrence: US)
  Receive Date: 20210224
  Receipt Date: 20210224
  Transmission Date: 20210420
  Serious: Yes (Disabling)
  Sender: FDA-Public Use
  Company Number: None

PATIENT
  Age: 56 Year
  Sex: Male
  Weight: 76.5 kg

DRUGS (10)
  1. GLIMEPIRIDE. [Concomitant]
     Active Substance: GLIMEPIRIDE
  2. MULTI?VITAMIN [Concomitant]
     Active Substance: .ALPHA.-TOCOPHEROL ACETATE, DL-\ASCORBIC ACID\CYANOCOBALAMIN\FLUORIDE ION\FOLIC ACID\NIACIN\PYRIDOXINE\RIBOFLAVIN\THIAMINE\VITAMIN A\VITAMIN D
  3. ROSUVASTATIN. [Concomitant]
     Active Substance: ROSUVASTATIN
  4. TYLENOL [Concomitant]
     Active Substance: ACETAMINOPHEN
  5. LUPRON [Suspect]
     Active Substance: LEUPROLIDE ACETATE
     Indication: PROSTATE CANCER
     Dates: start: 20191209
  6. VITAMIN D3 [Concomitant]
     Active Substance: CHOLECALCIFEROL
  7. ALEVE [Concomitant]
     Active Substance: NAPROXEN SODIUM
  8. TAMSULOSIN [Concomitant]
     Active Substance: TAMSULOSIN
  9. LISINOPRIL. [Concomitant]
     Active Substance: LISINOPRIL
  10. CALCIUM [Concomitant]
     Active Substance: CALCIUM

REACTIONS (12)
  - Night sweats [None]
  - Type 1 diabetes mellitus [None]
  - Visual impairment [None]
  - Prostatic specific antigen abnormal [None]
  - Neuropathy peripheral [None]
  - Hot flush [None]
  - Blood cholesterol increased [None]
  - Gait disturbance [None]
  - Quality of life decreased [None]
  - Oedema peripheral [None]
  - Neuralgia [None]
  - Blood testosterone decreased [None]

NARRATIVE: CASE EVENT DATE: 20191218
